FAERS Safety Report 11061220 (Version 1)
Quarter: 2015Q2

REPORT INFORMATION
  Report Type: Spontaneous
  Country: US (occurrence: US)
  Receive Date: 20150424
  Receipt Date: 20150424
  Transmission Date: 20150821
  Serious: Yes (Death)
  Sender: FDA-Public Use
  Company Number: US-CIPLA LTD.-2015US03337

PATIENT

DRUGS (6)
  1. GLIMEPRIDE [Suspect]
     Active Substance: GLIMEPIRIDE
  2. CITALOPRAM [Suspect]
     Active Substance: CITALOPRAM HYDROBROMIDE
  3. WARFARIN [Suspect]
     Active Substance: WARFARIN
  4. KCL [Suspect]
     Active Substance: POTASSIUM CHLORIDE
  5. DIAZEPAM. [Suspect]
     Active Substance: DIAZEPAM
     Dosage: UNK
  6. ATENOLOL. [Suspect]
     Active Substance: ATENOLOL

REACTIONS (1)
  - Death [Fatal]
